FAERS Safety Report 5042193-1 (Version None)
Quarter: 2006Q2

REPORT INFORMATION
  Report Type: 
  Country: None (occurrence: None)
  Receive Date: 20060627
  Receipt Date: 20060620
  Transmission Date: 20061013
  Serious: Yes (Hospitalization)
  Sender: FDA-Public Use
  Company Number: 2006BH011157

PATIENT
  Age: 57 Year
  Sex: Female

DRUGS (3)
  1. LORAZEPAM [Suspect]
     Indication: INSOMNIA
     Dates: start: 20050501
  2. FLUTICASONE + SALMETEROL MULTI DOSE POWDER INHALER [Suspect]
     Indication: CHRONIC OBSTRUCTIVE PULMONARY DISEASE
     Dosage: 2 PUFF;EVERY DAY;INH
     Route: 055
     Dates: start: 20060412, end: 20060505
  3. FLUOXETINE HYDROCHLORIDE [Suspect]
     Indication: DEPRESSION

REACTIONS (1)
  - MENTAL DISORDER [None]
